FAERS Safety Report 6557710-X (Version None)
Quarter: 2010Q1

REPORT INFORMATION
  Report Type: 
  Country: None (occurrence: None)
  Receive Date: 20100129
  Receipt Date: 20100125
  Transmission Date: 20100710
  Serious: Yes (Death, Life-Threatening)
  Sender: FDA-Public Use
  Company Number: JP-SANOFI-AVENTIS-2010SA000699

PATIENT
  Age: 70 Year
  Sex: Male
  Weight: 60 kg

DRUGS (7)
  1. ANCARON [Suspect]
     Indication: VENTRICULAR FIBRILLATION
     Route: 048
     Dates: start: 20091118, end: 20091224
  2. PLAVIX [Suspect]
     Route: 048
     Dates: start: 20091129, end: 20091224
  3. PLAVIX [Suspect]
     Indication: MYOCARDIAL INFARCTION
     Route: 048
     Dates: start: 20091129, end: 20091224
  4. ALEVIATIN [Suspect]
     Route: 048
     Dates: start: 20091130, end: 20091224
  5. MEROPEN [Suspect]
     Indication: PNEUMONIA
     Route: 042
     Dates: start: 20091222, end: 20091224
  6. GASTER D [Suspect]
     Indication: GASTRIC ULCER
     Route: 048
     Dates: start: 20091118, end: 20091224
  7. ASPIRIN [Concomitant]
     Indication: MYOCARDIAL INFARCTION
     Route: 048
     Dates: start: 20091118

REACTIONS (2)
  - GRANULOCYTOPENIA [None]
  - MULTI-ORGAN FAILURE [None]
